FAERS Safety Report 10498887 (Version 1)
Quarter: 2014Q4

REPORT INFORMATION
  Report Type: Spontaneous
  Country: BR (occurrence: BR)
  Receive Date: 20141006
  Receipt Date: 20141006
  Transmission Date: 20150528
  Serious: Yes (Other)
  Sender: FDA-Public Use
  Company Number: BR-PFIZER INC-2014271435

PATIENT
  Age: 57 Year
  Sex: Female
  Weight: 62 kg

DRUGS (3)
  1. OMEPRAZOLE. [Concomitant]
     Active Substance: OMEPRAZOLE
     Indication: GASTRIC DISORDER
     Dosage: 1 TABLET IN THE MORNING AND 2 TABLETS AT NIGHT
  2. LYRICA [Suspect]
     Active Substance: PREGABALIN
     Indication: PAIN
     Dosage: 75 MG, 3X/DAY (EVERY 8 HOURS)
     Route: 048
     Dates: start: 2012
  3. OPTIVE UD [Concomitant]
     Indication: DRY EYE
     Dosage: 1 DROP IN EACH EYE TWICE DAILY

REACTIONS (5)
  - Sjogren^s syndrome [Unknown]
  - Pharyngeal haemorrhage [Unknown]
  - Infection [Recovering/Resolving]
  - Melaena [Unknown]
  - Haemorrhage [Unknown]
